FAERS Safety Report 7824751-1 (Version None)
Quarter: 2011Q4

REPORT INFORMATION
  Report Type: 
  Country: None (occurrence: None)
  Receive Date: 20111019
  Receipt Date: 20111011
  Transmission Date: 20120403
  Serious: Yes (Other)
  Sender: FDA-Public Use
  Company Number: PHEH2011US06157

PATIENT
  Sex: Female

DRUGS (10)
  1. LASIX [Concomitant]
     Dosage: 40 MG, QD
  2. GILENYA [Suspect]
     Indication: MULTIPLE SCLEROSIS
     Dosage: 0.5 MG, QD
     Route: 048
     Dates: start: 20110822, end: 20111005
  3. BACLOFEN [Concomitant]
     Dosage: 20 MG, BID
  4. REMERON [Concomitant]
     Dosage: 30 MG, QD
  5. ZANAFLEX [Concomitant]
     Dosage: 4 MG, QD
  6. NEURONTIN [Concomitant]
     Dosage: 300 MG, TID
  7. VICODIN [Concomitant]
  8. PAXIL [Concomitant]
     Dosage: 40 MG, QD
  9. TOPAMAX [Concomitant]
     Dosage: 50 MG, BID
  10. XANAX [Concomitant]
     Dosage: 0.25 MG, BID

REACTIONS (8)
  - FALL [None]
  - GAIT DISTURBANCE [None]
  - HEMIPARESIS [None]
  - MIGRAINE [None]
  - MULTIPLE SCLEROSIS RELAPSE [None]
  - FOOT FRACTURE [None]
  - DEPRESSION [None]
  - MICTURITION URGENCY [None]
